FAERS Safety Report 5066017-1 (Version None)
Quarter: 2006Q3

REPORT INFORMATION
  Report Type: 
  Country: None (occurrence: None)
  Receive Date: 20060731
  Receipt Date: 20060731
  Transmission Date: 20061208
  Serious: Yes (Disabling, Other)
  Sender: FDA-Public Use
  Company Number: None

PATIENT
  Age: 29 Year
  Sex: Female
  Weight: 61.2356 kg

DRUGS (3)
  1. NEURONTIN [Suspect]
     Indication: CARPAL TUNNEL SYNDROME
     Dosage: 1 CAPSULE    3 TIMES A DAY   PO
     Route: 048
     Dates: start: 20050723, end: 20051108
  2. NEURONTIN [Suspect]
     Indication: HYPOAESTHESIA
     Dosage: 1 CAPSULE    3 TIMES A DAY   PO
     Route: 048
     Dates: start: 20050723, end: 20051108
  3. NEURONTIN [Suspect]
     Indication: POST PROCEDURAL COMPLICATION
     Dosage: 1 CAPSULE    3 TIMES A DAY   PO
     Route: 048
     Dates: start: 20050723, end: 20051108

REACTIONS (7)
  - AGGRESSION [None]
  - AMNESIA [None]
  - DISORIENTATION [None]
  - FATIGUE [None]
  - MANIA [None]
  - MYALGIA [None]
  - SUICIDAL IDEATION [None]
